FAERS Safety Report 7439903-2 (Version None)
Quarter: 2011Q2

REPORT INFORMATION
  Report Type: 
  Country: None (occurrence: None)
  Receive Date: 20110427
  Receipt Date: 20110419
  Transmission Date: 20111010
  Serious: Yes (Death, Other)
  Sender: FDA-Public Use
  Company Number: US-JNJFOC-20110410220

PATIENT
  Age: 61 Year
  Sex: Female

DRUGS (3)
  1. MTX [Concomitant]
     Indication: IMMUNOSUPPRESSANT DRUG THERAPY
     Dosage: 7.5-10 MG
     Route: 065
  2. ITRACONAZOLE [Suspect]
     Indication: ASPERGILLOSIS
     Route: 065
  3. PREDNISONE [Concomitant]
     Indication: IMMUNOSUPPRESSANT DRUG THERAPY
     Dosage: 20-50 MG
     Route: 065

REACTIONS (2)
  - DRUG INEFFECTIVE [None]
  - DISEASE PROGRESSION [None]
